FAERS Safety Report 12292838 (Version 2)
Quarter: 2016Q2

REPORT INFORMATION
  Report Type: Report from Study
  Country: US (occurrence: US)
  Receive Date: 20160421
  Receipt Date: 20160603
  Transmission Date: 20160815
  Serious: Yes (Other)
  Sender: FDA-Public Use
  Company Number: US-AMGEN-USASL2016040405

PATIENT
  Age: 70 Year
  Sex: Female

DRUGS (1)
  1. REPATHA [Suspect]
     Active Substance: EVOLOCUMAB
     Indication: TYPE IIA HYPERLIPIDAEMIA
     Dosage: 140 MG, Q2WK
     Route: 065
     Dates: start: 201601

REACTIONS (27)
  - Respiratory disorder [Unknown]
  - Sinus disorder [Unknown]
  - Hypersensitivity [Unknown]
  - Dehydration [Unknown]
  - Thyroid disorder [Unknown]
  - Nausea [Unknown]
  - Peripheral swelling [Unknown]
  - Hypotension [Unknown]
  - Sinusitis [Unknown]
  - Swelling face [Unknown]
  - Blood glucose decreased [Unknown]
  - Off label use [Unknown]
  - Urinary retention [Unknown]
  - Alopecia [Not Recovered/Not Resolved]
  - Plicated tongue [Unknown]
  - Back pain [Unknown]
  - Osteoporosis [Not Recovered/Not Resolved]
  - Malaise [Unknown]
  - Tremor [Unknown]
  - Oral mucosal blistering [Unknown]
  - Chromaturia [Unknown]
  - Urine viscosity abnormal [Unknown]
  - Drug effect decreased [Unknown]
  - Balance disorder [Unknown]
  - Arthritis [Unknown]
  - Dizziness [Unknown]
  - Arthralgia [Not Recovered/Not Resolved]
